FAERS Safety Report 12231707 (Version 1)
Quarter: 2016Q2

REPORT INFORMATION
  Report Type: Spontaneous
  Country: US (occurrence: US)
  Receive Date: 20160401
  Receipt Date: 20160401
  Transmission Date: 20160815
  Serious: Yes (Other)
  Sender: FDA-Public Use
  Company Number: US-BIOGEN-2016BI00212959

PATIENT
  Sex: Female

DRUGS (1)
  1. TYSABRI [Suspect]
     Active Substance: NATALIZUMAB
     Indication: MULTIPLE SCLEROSIS
     Route: 042
     Dates: start: 20140512, end: 20151102

REACTIONS (5)
  - Suicidal ideation [Unknown]
  - Facial bones fracture [Unknown]
  - Hand fracture [Unknown]
  - Fall [Recovered/Resolved]
  - Lower limb fracture [Unknown]
